FAERS Safety Report 14794652 (Version 1)
Quarter: 2018Q2

REPORT INFORMATION
  Report Type: Spontaneous
  Country: ZA (occurrence: ZA)
  Receive Date: 20180423
  Receipt Date: 20180423
  Transmission Date: 20180711
  Serious: Yes (Hospitalization)
  Sender: FDA-Public Use
  Company Number: ZA-PFIZER INC-2018159811

PATIENT
  Age: 68 Year
  Sex: Female

DRUGS (14)
  1. PREMARIN [Suspect]
     Active Substance: ESTROGENS, CONJUGATED
     Dosage: 0.3 MG, UNK
  2. DEGRANOL [Suspect]
     Active Substance: CARBAMAZEPINE
     Dosage: 200 MG, UNK
  3. PURICOS [Suspect]
     Active Substance: ALLOPURINOL
     Dosage: 300 MG, UNK
  4. ATACAND [Suspect]
     Active Substance: CANDESARTAN CILEXETIL
     Dosage: 16/12.5 MG
  5. CLENIL NASAL AQUOSO [Suspect]
     Active Substance: BECLOMETHASONE DIPROPIONATE
     Dosage: 50 UG, UNK
  6. ASPAVOR [Suspect]
     Active Substance: ATORVASTATIN
     Dosage: 10 MG, UNK
  7. SPIRACTIN (SPIRONOLACTONE) [Suspect]
     Active Substance: SPIRONOLACTONE
     Dosage: 25 MG, UNK
  8. TOPZOLE [Suspect]
     Active Substance: PANTOPRAZOLE SODIUM
     Dosage: 40 MG, UNK
  9. ACCOLATE [Suspect]
     Active Substance: ZAFIRLUKAST
     Dosage: 20 MG, UNK
  10. FOXAIR [Suspect]
     Active Substance: FLUTICASONE PROPIONATE\SALMETEROL XINAFOATE
     Dosage: 50/500 MCG
  11. BILOCOR [Suspect]
     Active Substance: BISOPROLOL FUMARATE
     Dosage: 10 MG, UNK
  12. GLUCOPHAGE XR [Suspect]
     Active Substance: METFORMIN HYDROCHLORIDE
     Dosage: 1000 MG, UNK
  13. THEOPLUS [Suspect]
     Active Substance: THEOPHYLLINE
     Dosage: 200 MG, UNK
  14. TREPILINE [Suspect]
     Active Substance: AMITRIPTYLINE
     Dosage: 25 MG, UNK

REACTIONS (1)
  - Hernia [Unknown]
